FAERS Safety Report 18090735 (Version 1)
Quarter: 2020Q3

REPORT INFORMATION
  Report Type: Spontaneous
  Country: CN (occurrence: CN)
  Receive Date: 20200729
  Receipt Date: 20200729
  Transmission Date: 20201103
  Serious: Yes (Other)
  Sender: FDA-Public Use
  Company Number: CN-ROCHE-2649903

PATIENT
  Age: 73 Year
  Sex: Male

DRUGS (21)
  1. DOXORUBICIN [Concomitant]
     Active Substance: DOXORUBICIN
     Dates: start: 20191010
  2. DOXORUBICIN [Concomitant]
     Active Substance: DOXORUBICIN
     Dates: start: 20191107
  3. VINCRISTINE [Concomitant]
     Active Substance: VINCRISTINE
     Dates: start: 20190821
  4. VINCRISTINE [Concomitant]
     Active Substance: VINCRISTINE
     Dates: start: 20191107
  5. MABTHERA [Suspect]
     Active Substance: RITUXIMAB
     Indication: DIFFUSE LARGE B-CELL LYMPHOMA STAGE IV
     Dosage: R?CHOP REGIMEN
     Route: 065
     Dates: start: 20190730
  6. MABTHERA [Suspect]
     Active Substance: RITUXIMAB
     Dosage: R?CHOP REGIMEN
     Route: 065
     Dates: start: 20191010
  7. CYCLOPHOSPHAMIDE. [Concomitant]
     Active Substance: CYCLOPHOSPHAMIDE
     Dates: start: 20191107
  8. DOXORUBICIN [Concomitant]
     Active Substance: DOXORUBICIN
     Indication: DIFFUSE LARGE B-CELL LYMPHOMA STAGE IV
     Dates: start: 20190730
  9. MABTHERA [Suspect]
     Active Substance: RITUXIMAB
     Dosage: R?CHOP REGIMEN
     Route: 065
     Dates: start: 20191107
  10. PREDNISONE. [Concomitant]
     Active Substance: PREDNISONE
     Dates: start: 20190821
  11. MABTHERA [Suspect]
     Active Substance: RITUXIMAB
     Dosage: R?CHOP REGIMEN
     Route: 065
     Dates: start: 20190821
  12. CYCLOPHOSPHAMIDE. [Concomitant]
     Active Substance: CYCLOPHOSPHAMIDE
     Indication: DIFFUSE LARGE B-CELL LYMPHOMA STAGE IV
     Route: 065
     Dates: start: 20190730
  13. CYCLOPHOSPHAMIDE. [Concomitant]
     Active Substance: CYCLOPHOSPHAMIDE
     Dates: start: 20190821
  14. VINCRISTINE [Concomitant]
     Active Substance: VINCRISTINE
     Indication: DIFFUSE LARGE B-CELL LYMPHOMA STAGE IV
     Dates: start: 20190730
  15. PREDNISONE. [Concomitant]
     Active Substance: PREDNISONE
     Dates: start: 20191010
  16. PREDNISONE. [Concomitant]
     Active Substance: PREDNISONE
     Dates: start: 20191107
  17. CYCLOPHOSPHAMIDE. [Concomitant]
     Active Substance: CYCLOPHOSPHAMIDE
     Dates: start: 20191010
  18. DOXORUBICIN [Concomitant]
     Active Substance: DOXORUBICIN
     Dates: start: 20190821
  19. VINCRISTINE [Concomitant]
     Active Substance: VINCRISTINE
     Dates: start: 20191010
  20. PREDNISONE. [Concomitant]
     Active Substance: PREDNISONE
     Indication: DIFFUSE LARGE B-CELL LYMPHOMA STAGE IV
     Dates: start: 20190730
  21. IMATINIB. [Concomitant]
     Active Substance: IMATINIB MESYLATE
     Dates: start: 2019

REACTIONS (6)
  - Gastrointestinal stromal tumour [Unknown]
  - Deep vein thrombosis [Recovered/Resolved]
  - Muscle haemorrhage [Unknown]
  - Pulmonary artery thrombosis [Recovered/Resolved]
  - Hypoxia [Unknown]
  - Atrial thrombosis [Recovered/Resolved]
